FAERS Safety Report 6807181-0 (Version None)
Quarter: 2010Q2

REPORT INFORMATION
  Report Type: 
  Country: None (occurrence: None)
  Receive Date: 20100629
  Receipt Date: 20080808
  Transmission Date: 20101027
  Serious: No
  Sender: FDA-Public Use
  Company Number: US-PFIZER INC-2008066361

PATIENT
  Age: 95 Year
  Sex: Female

DRUGS (4)
  1. ZYVOX [Suspect]
     Indication: URINARY TRACT INFECTION
  2. ZYVOX [Suspect]
     Indication: STAPHYLOCOCCAL INFECTION
  3. ALL OTHER THERAPEUTIC PRODUCTS [Concomitant]
     Indication: STAPHYLOCOCCAL INFECTION
  4. ALL OTHER THERAPEUTIC PRODUCTS [Concomitant]
     Indication: URINARY TRACT INFECTION

REACTIONS (1)
  - LETHARGY [None]
